FAERS Safety Report 10692377 (Version 1)
Quarter: 2015Q1

REPORT INFORMATION
  Report Type: Spontaneous
  Country: US (occurrence: None)
  Receive Date: 20150105
  Receipt Date: 20150105
  Transmission Date: 20150720
  Serious: Yes (Death)
  Sender: FDA-Public Use
  Company Number: None

PATIENT
  Age: 52 Year
  Sex: Male
  Weight: 173.4 kg

DRUGS (2)
  1. VENLAFAXINE [Suspect]
     Active Substance: VENLAFAXINE HYDROCHLORIDE
     Indication: AFFECTIVE DISORDER
     Route: 048
     Dates: start: 20140310, end: 20141121
  2. PIPERACILLIN/TAZOBACTAM [Suspect]
     Active Substance: PIPERACILLIN SODIUM\TAZOBACTAM SODIUM
     Indication: CHOLANGITIS
     Route: 042
     Dates: start: 20141118, end: 20141121

REACTIONS (10)
  - Cholelithiasis [None]
  - Nausea [None]
  - Vomiting [None]
  - Encephalopathy [None]
  - Delirium [None]
  - Confusional state [None]
  - Chest pain [None]
  - Oliguria [None]
  - Abdominal pain [None]
  - Hypotension [None]

NARRATIVE: CASE EVENT DATE: 20141205
